FAERS Safety Report 4656661-5 (Version None)
Quarter: 2005Q2

REPORT INFORMATION
  Report Type: 
  Country: None (occurrence: None)
  Receive Date: 20050331
  Receipt Date: 20041018
  Transmission Date: 20051028
  Serious: No
  Sender: FDA-Public Use
  Company Number: US096381

PATIENT
  Age: 40 Year
  Sex: Female
  Weight: 45 kg

DRUGS (1)
  1. NEULASTA [Suspect]
     Dosage: 6 MG

REACTIONS (2)
  - LYMPH NODE PAIN [None]
  - NEUTROPHIL COUNT INCREASED [None]
